FAERS Safety Report 8793383 (Version 2)
Quarter: 2012Q4

REPORT INFORMATION
  Report Type: 
  Country: US (occurrence: US)
  Receive Date: 20120917
  Receipt Date: 20121002
  Transmission Date: 20130627
  Serious: Yes (Hospitalization)
  Sender: FDA-Public Use
  Company Number: US-PFIZER INC-2012227780

PATIENT
  Age: 49 Year
  Sex: Male
  Weight: 111 kg

DRUGS (9)
  1. LYRICA [Suspect]
     Indication: SCIATICA
     Dosage: 100 mg, 3x/day
     Route: 048
     Dates: start: 2005
  2. LYRICA [Suspect]
     Indication: NEURALGIA
  3. PRISTIQ [Concomitant]
     Indication: DEPRESSION
     Dosage: 100 mg, daily
  4. ULTRAM [Concomitant]
     Indication: BACK PAIN
     Dosage: 100 mg, 4x/day
     Route: 048
  5. TIZANIDINE HYDROCHLORIDE [Concomitant]
     Indication: MUSCLE SPASMS
     Dosage: 4 mg, 3x/day
  6. HYDROCHLOROTHIAZIDE [Concomitant]
     Indication: BLOOD PRESSURE ABNORMAL
     Dosage: 12.5 mg, daily
  7. FAMOTIDINE [Concomitant]
     Indication: GASTROOESOPHAGEAL REFLUX DISEASE
     Dosage: 20 mg, 2x/day
  8. METOPROLOL TARTRATE [Concomitant]
     Indication: BLOOD PRESSURE ABNORMAL
     Dosage: 125 mg, 2x/day
  9. LEVOTHYROXINE SODIUM [Concomitant]
     Indication: THYROID DISORDER
     Dosage: 150 ug, daily

REACTIONS (1)
  - Bone cyst [Recovered/Resolved]
